FAERS Safety Report 21279424 (Version 3)
Quarter: 2022Q4

REPORT INFORMATION
  Report Type: Spontaneous
  Country: CO (occurrence: CO)
  Receive Date: 20220901
  Receipt Date: 20221027
  Transmission Date: 20230113
  Serious: No
  Sender: FDA-Public Use
  Company Number: CO-PFIZER INC-PV202200048028

PATIENT
  Age: 13 Year
  Sex: Female

DRUGS (1)
  1. GENOTROPIN [Suspect]
     Active Substance: SOMATROPIN
     Indication: Growth hormone deficiency
     Dosage: UNK

REACTIONS (3)
  - Device breakage [Unknown]
  - Product physical issue [Unknown]
  - Device issue [Unknown]
